FAERS Safety Report 22042844 (Version 1)
Quarter: 2023Q1

REPORT INFORMATION
  Report Type: Spontaneous
  Country: ES (occurrence: ES)
  Receive Date: 20230228
  Receipt Date: 20230228
  Transmission Date: 20230418
  Serious: Yes (Hospitalization, Other)
  Sender: FDA-Public Use
  Company Number: ES-AEMPS-1333635

PATIENT
  Age: 72 Year
  Sex: Male

DRUGS (2)
  1. ACETAMINOPHEN [Suspect]
     Active Substance: ACETAMINOPHEN
     Indication: Pain
     Dosage: 1 GRAM, FOUR TIMES/DAY (1-1-1)
     Route: 048
     Dates: start: 20221216, end: 20230204
  2. METAMIZOLE\PROPOXYPHENE [Suspect]
     Active Substance: METAMIZOLE\PROPOXYPHENE
     Indication: Pain
     Dosage: 575 MILLIGRAM (1-1-1)
     Route: 048
     Dates: start: 20221216, end: 20230204

REACTIONS (2)
  - Acute kidney injury [Not Recovered/Not Resolved]
  - Tubulointerstitial nephritis [Not Recovered/Not Resolved]

NARRATIVE: CASE EVENT DATE: 20230203
